FAERS Safety Report 4552847-9 (Version None)
Quarter: 2005Q1

REPORT INFORMATION
  Report Type: 
  Country: None (occurrence: None)
  Receive Date: 20050114
  Receipt Date: 20050106
  Transmission Date: 20050727
  Serious: Yes (Other)
  Sender: FDA-Public Use
  Company Number: US-MERCK-0501USA00833

PATIENT
  Age: 70 Year
  Sex: Female

DRUGS (1)
  1. SINGULAIR [Suspect]
     Route: 048

REACTIONS (6)
  - ADVERSE EVENT [None]
  - INCREASED TENDENCY TO BRUISE [None]
  - MOUTH HAEMORRHAGE [None]
  - MYALGIA [None]
  - ORAL SURGERY [None]
  - PROCEDURAL COMPLICATION [None]
